FAERS Safety Report 9549040 (Version 3)
Quarter: 2016Q3

REPORT INFORMATION
  Report Type: Report from Study
  Country: CA (occurrence: CA)
  Receive Date: 20130924
  Receipt Date: 20160816
  Transmission Date: 20161109
  Serious: Yes (Other)
  Sender: FDA-Public Use
  Company Number: CA-ROCHE-1279888

PATIENT
  Age: 67 Year
  Sex: Male
  Weight: 70.7 kg

DRUGS (19)
  1. RITUXAN [Suspect]
     Active Substance: RITUXIMAB
     Indication: SJOGREN^S SYNDROME
     Dosage: DAY 1 AND DAY 15
     Route: 042
     Dates: start: 20130430
  2. RITUXAN [Suspect]
     Active Substance: RITUXIMAB
     Indication: AUTOIMMUNE ENCEPHALOPATHY
  3. DIPHENHYDRAMINE HCL [Concomitant]
     Active Substance: DIPHENHYDRAMINE HYDROCHLORIDE
     Indication: PREMEDICATION
     Route: 048
     Dates: start: 20130430
  4. METHYLPREDNISOLONE. [Concomitant]
     Active Substance: METHYLPREDNISOLONE
     Indication: PREMEDICATION
     Route: 042
     Dates: start: 20130430
  5. CELLCEPT [Suspect]
     Active Substance: MYCOPHENOLATE MOFETIL\MYCOPHENOLATE MOFETIL HYDROCHLORIDE
     Indication: PRODUCT USED FOR UNKNOWN INDICATION
     Route: 065
  6. GLUTEN DIET [Concomitant]
  7. PREDNISONE. [Concomitant]
     Active Substance: PREDNISONE
     Dosage: ALTERNATING DAYS
     Route: 048
  8. ACTONEL [Concomitant]
     Active Substance: RISEDRONATE SODIUM
     Route: 065
  9. PLAQUENIL [Concomitant]
     Active Substance: HYDROXYCHLOROQUINE SULFATE
  10. PREDNISONE. [Concomitant]
     Active Substance: PREDNISONE
     Dosage: ALTERNATING DAYS?CURRENT DOSE 10MG/DAY
     Route: 048
  11. NORVASC [Concomitant]
     Active Substance: AMLODIPINE BESYLATE
  12. ZESTRIL [Concomitant]
     Active Substance: LISINOPRIL
  13. GINKOBA [Concomitant]
     Active Substance: GINKGO
  14. VITAMIN C [Concomitant]
     Active Substance: ASCORBIC ACID
  15. IVIG [Concomitant]
     Active Substance: HUMAN IMMUNOGLOBULIN G
     Route: 065
  16. POTASSIUM CITRATE. [Concomitant]
     Active Substance: POTASSIUM CITRATE
  17. ACETAMINOPHEN. [Concomitant]
     Active Substance: ACETAMINOPHEN
     Indication: PREMEDICATION
     Route: 048
     Dates: start: 20130430
  18. MINOCYCLINE [Concomitant]
     Active Substance: MINOCYCLINE\MINOCYCLINE HYDROCHLORIDE
  19. ASPIRIN. [Concomitant]
     Active Substance: ASPIRIN
     Dosage: ALTERNATING DAYS
     Route: 065

REACTIONS (8)
  - Diarrhoea [Unknown]
  - Anastomotic ulcer [Unknown]
  - Off label use [Unknown]
  - Weight decreased [Recovering/Resolving]
  - Eye infection viral [Recovering/Resolving]
  - Glucose tolerance impaired [Unknown]
  - Encephalopathy [Recovered/Resolved]
  - Fatigue [Recovering/Resolving]

NARRATIVE: CASE EVENT DATE: 201401
